FAERS Safety Report 4369311-2 (Version None)
Quarter: 2004Q2

REPORT INFORMATION
  Report Type: 
  Country: None (occurrence: None)
  Receive Date: 20040528
  Receipt Date: 20040517
  Transmission Date: 20050107
  Serious: Yes (Other)
  Sender: FDA-Public Use
  Company Number: US-JNJFOC-20031202942

PATIENT
  Age: 67 Year
  Sex: Male
  Weight: 83.9154 kg

DRUGS (21)
  1. REMICADE [Suspect]
     Indication: CROHN'S DISEASE
     Dosage: SEE IMAGE
     Route: 042
     Dates: start: 20021010
  2. REMICADE [Suspect]
     Indication: CROHN'S DISEASE
     Dosage: SEE IMAGE
     Route: 042
     Dates: start: 20021024
  3. REMICADE [Suspect]
     Indication: CROHN'S DISEASE
     Dosage: SEE IMAGE
     Route: 042
     Dates: start: 20031218
  4. REMICADE [Suspect]
     Indication: CROHN'S DISEASE
     Dosage: SEE IMAGE
     Route: 042
     Dates: start: 20040112
  5. REMICADE [Suspect]
     Indication: CROHN'S DISEASE
     Dosage: SEE IMAGE
     Route: 042
     Dates: start: 20040216
  6. REMICADE [Suspect]
     Indication: CROHN'S DISEASE
     Dosage: SEE IMAGE
     Route: 042
     Dates: start: 20040303
  7. ASACOL [Concomitant]
  8. IMURAN [Concomitant]
  9. PRAVACHOL [Concomitant]
  10. ACTOSE (PIOGLITAZONE) [Concomitant]
  11. VERAPAMIL [Concomitant]
  12. ATACAN (CANDESARTAN CILEXETIL) [Concomitant]
  13. XALATAN [Concomitant]
  14. ALREX (LOTEPREDNOL ETABONATE) [Concomitant]
  15. VERAPAMIL [Concomitant]
  16. ASPIRIN (ACETYLSALYICYLIC ACID) [Concomitant]
  17. LISINOPRIL [Concomitant]
  18. CASODEX [Concomitant]
  19. ELIGARD (ALL OTHER THERAPEUTIC PRODUCTS) [Concomitant]
  20. FOLGERD (ALL OTHER THERAPEUTIC PRODUCTS) [Concomitant]
  21. FLUOCINOLONE (FLUOCINOLONE ACETOIDE) [Concomitant]

REACTIONS (7)
  - DISEASE RECURRENCE [None]
  - DRUG EFFECT DECREASED [None]
  - PNEUMOCOCCAL INFECTION [None]
  - PROSTATE CANCER [None]
  - RENAL FAILURE [None]
  - SKIN INFECTION [None]
  - STAPHYLOCOCCAL INFECTION [None]
